FAERS Safety Report 8956077 (Version 2)
Quarter: 2012Q4

REPORT INFORMATION
  Report Type: Report from Study
  Country: BE (occurrence: BE)
  Receive Date: 20121210
  Receipt Date: 20121227
  Transmission Date: 20130627
  Serious: Yes (Hospitalization)
  Sender: FDA-Public Use
  Company Number: BE-ABBOTT-12P-013-1018215-00

PATIENT
  Age: 73 Year
  Sex: Female

DRUGS (5)
  1. HUMIRA [Suspect]
     Indication: RHEUMATOID ARTHRITIS
     Dates: start: 20070912
  2. TRITACE [Concomitant]
     Indication: HYPERTENSION
     Dosage: Daily
  3. MEDROL [Concomitant]
     Indication: HYPERTENSION
  4. LIDOCAINE (LINISOL) 1% + METHYLPREDNISOLONE ACETATE (DEPO MEDROL) [Concomitant]
     Indication: SCIATICA
     Dosage: 3ml LINISOL + 40 MG DEPO MEDROL
     Dates: start: 20120629, end: 20120629
  5. LIDOCAINE (LINISOL) 1% + METHYLPREDNISOLONE ACETATE (DEPO MEDROL) [Concomitant]
     Dosage: 3ml LINISOL + 40 MG DEPO MEDROL
     Dates: start: 20120718, end: 20120718

REACTIONS (12)
  - Sciatica [Unknown]
  - Osteosclerosis [Recovered/Resolved]
  - Gamma-glutamyltransferase increased [Unknown]
  - Blood lactate dehydrogenase increased [Unknown]
  - Protein total decreased [Unknown]
  - Alpha 2 globulin increased [Unknown]
  - Platelet count decreased [Unknown]
  - Blood phosphorus decreased [Unknown]
  - Blood lactate dehydrogenase increased [Unknown]
  - Protein total decreased [Unknown]
  - Alpha 2 globulin increased [Unknown]
  - Blood creatinine decreased [Unknown]
